FAERS Safety Report 4393236-X (Version None)
Quarter: 2004Q3

REPORT INFORMATION
  Report Type: 
  Country: None (occurrence: None)
  Receive Date: 20040702
  Receipt Date: 20040621
  Transmission Date: 20050211
  Serious: Yes (Other)
  Sender: FDA-Public Use
  Company Number: GB-JNJFOC-20040506655

PATIENT
  Age: 72 Year
  Sex: Female
  Weight: 72 kg

DRUGS (5)
  1. REMICADE [Suspect]
     Indication: RHEUMATOID ARTHRITIS
     Dosage: 11TH INFUSION.
     Dates: start: 20030313
  2. METHOTREXATE [Concomitant]
  3. FOLIC ACID [Concomitant]
  4. MELOXICAM (MELOXICAM) [Concomitant]
  5. PARACETAMOL (PARACETAMOL) [Concomitant]

REACTIONS (7)
  - CHEST PAIN [None]
  - DYSPEPSIA [None]
  - FEELING ABNORMAL [None]
  - FLUSHING [None]
  - HEADACHE [None]
  - HYPERSENSITIVITY [None]
  - HYPERTENSION [None]
